FAERS Safety Report 4573016-2 (Version None)
Quarter: 2005Q1

REPORT INFORMATION
  Report Type: 
  Country: None (occurrence: None)
  Receive Date: 20050204
  Receipt Date: 20050126
  Transmission Date: 20050727
  Serious: Yes (Hospitalization)
  Sender: FDA-Public Use
  Company Number: DEWYE354919JAN05

PATIENT
  Age: 66 Year
  Sex: Male

DRUGS (3)
  1. TREVILOR (VENLAFAXINE HYDROCHLORIDE, UNSPEC, 0) [Suspect]
     Indication: DEPRESSION
     Dosage: SEE IMAGE
     Route: 048
     Dates: start: 20040801
  2. QUILONUM - SLOW RELEASE (LITHIUM CARBONATE) [Concomitant]
  3. REMERGIL (MIRTAZAPINE) [Concomitant]

REACTIONS (5)
  - ANTIPSYCHOTIC DRUG LEVEL BELOW THERAPEUTIC [None]
  - BALLISMUS [None]
  - MUSCLE TWITCHING [None]
  - OVERDOSE [None]
  - TREMOR [None]
